FAERS Safety Report 18731664 (Version 1)
Quarter: 2021Q1

REPORT INFORMATION
  Report Type: Report from Study
  Country: CA (occurrence: CA)
  Receive Date: 20210112
  Receipt Date: 20210112
  Transmission Date: 20210419
  Serious: Yes (Hospitalization)
  Sender: FDA-Public Use
  Company Number: CA-JNJFOC-20201103463

PATIENT
  Age: 39 Year
  Sex: Female
  Weight: 97 kg

DRUGS (3)
  1. STELARA [Suspect]
     Active Substance: USTEKINUMAB
  2. AZATHIOPRINE. [Concomitant]
     Active Substance: AZATHIOPRINE
     Indication: CROHN^S DISEASE
     Route: 048
  3. STELARA [Suspect]
     Active Substance: USTEKINUMAB
     Indication: CROHN^S DISEASE
     Route: 058
     Dates: start: 20190807

REACTIONS (3)
  - Intestinal resection [Recovering/Resolving]
  - Anal fistula [Not Recovered/Not Resolved]
  - Vaginal fistula [Recovering/Resolving]

NARRATIVE: CASE EVENT DATE: 20201211
